FAERS Safety Report 4287972-3 (Version None)
Quarter: 2004Q1

REPORT INFORMATION
  Report Type: 
  Country: None (occurrence: None)
  Receive Date: 20040205
  Receipt Date: 20040109
  Transmission Date: 20041129
  Serious: Yes (Hospitalization)
  Sender: FDA-Public Use
  Company Number: A02200400116

PATIENT
  Age: 82 Year
  Sex: Female

DRUGS (3)
  1. ZOLPIDEM TARTRATE [Suspect]
     Dosage: 10 MG OD, ORAL
     Route: 048
     Dates: start: 20031101, end: 20031123
  2. PAROXETINE HCL [Suspect]
     Dosage: 10 MG OD ORAL
     Route: 048
     Dates: start: 20031101, end: 20031123
  3. VIVALAN                (VILOXAZINE HYDROCHLORIDE) [Concomitant]

REACTIONS (5)
  - CONFUSIONAL STATE [None]
  - DEHYDRATION [None]
  - DISORIENTATION [None]
  - HEPATITIS [None]
  - PYREXIA [None]
